FAERS Safety Report 13647387 (Version 1)
Quarter: 2017Q2

REPORT INFORMATION
  Report Type: Spontaneous
  Country: US (occurrence: US)
  Receive Date: 20170613
  Receipt Date: 20170613
  Transmission Date: 20170830
  Serious: Yes (Other)
  Sender: FDA-Public Use
  Company Number: None

PATIENT
  Age: 77 Year
  Sex: Male

DRUGS (10)
  1. DIPYRIDAMOLE. [Concomitant]
     Active Substance: DIPYRIDAMOLE
  2. LONSURF [Suspect]
     Active Substance: TIPIRACIL HYDROCHLORIDE\TRIFLURIDINE
     Indication: RECTAL CANCER
     Dosage: THREE 15MG DAILY ORALLY
     Route: 048
     Dates: start: 20170419
  3. CIPROFLAXIN [Concomitant]
     Active Substance: CIPROFLOXACIN
  4. DIAZEPAM. [Concomitant]
     Active Substance: DIAZEPAM
  5. ATORVASTATIN [Concomitant]
     Active Substance: ATORVASTATIN
  6. MAGNESIUM [Concomitant]
     Active Substance: MAGNESIUM
  7. LONSURF [Suspect]
     Active Substance: TIPIRACIL HYDROCHLORIDE\TRIFLURIDINE
     Indication: RECTAL CANCER
     Route: 048
     Dates: start: 20170419
  8. MELOXICAM. [Concomitant]
     Active Substance: MELOXICAM
  9. AMLODIPINE [Concomitant]
     Active Substance: AMLODIPINE BESYLATE
  10. VITAMIN D [Concomitant]
     Active Substance: CHOLECALCIFEROL

REACTIONS (3)
  - Asthenia [None]
  - Blood count abnormal [None]
  - Gait disturbance [None]
